FAERS Safety Report 22280677 (Version 1)
Quarter: 2023Q2

REPORT INFORMATION
  Report Type: Spontaneous
  Country: US (occurrence: US)
  Receive Date: 20230503
  Receipt Date: 20230503
  Transmission Date: 20230722
  Serious: No
  Sender: FDA-Public Use
  Company Number: US-IDORSIA-004090-2023-US

PATIENT
  Sex: Female

DRUGS (2)
  1. QUVIVIQ [Suspect]
     Active Substance: DARIDOREXANT
     Indication: Insomnia
     Dosage: 25 MG, QD
     Route: 048
  2. QUVIVIQ [Suspect]
     Active Substance: DARIDOREXANT
     Dosage: 50 MG (25MG X2), QD
     Route: 048
     Dates: start: 20230320

REACTIONS (7)
  - Sleep terror [Unknown]
  - Fall [Unknown]
  - Accident at home [Unknown]
  - Disorientation [Unknown]
  - Back injury [Unknown]
  - Joint injury [Unknown]
  - Middle insomnia [Recovering/Resolving]
